FAERS Safety Report 4590682-6 (Version None)
Quarter: 2005Q1

REPORT INFORMATION
  Report Type: 
  Country: None (occurrence: None)
  Receive Date: 20050224
  Receipt Date: 20050217
  Transmission Date: 20050727
  Serious: Yes (Life-Threatening, Other)
  Sender: FDA-Public Use
  Company Number: ES-ABBOTT-05P-144-0291275-00

PATIENT
  Age: 77 Year
  Sex: Male

DRUGS (4)
  1. CLARITHROMYCIN [Suspect]
     Indication: DRUG USE FOR UNKNOWN INDICATION
  2. NIFEDIPINE [Interacting]
     Indication: HYPERTENSION
  3. CAPTOPRIL [Concomitant]
     Indication: HYPERTENSION
  4. DOXAZOSIN [Concomitant]
     Indication: HYPERTENSION

REACTIONS (5)
  - ATRIOVENTRICULAR BLOCK [None]
  - DRUG INTERACTION [None]
  - MULTI-ORGAN FAILURE [None]
  - SHOCK [None]
  - VASCULAR RESISTANCE SYSTEMIC DECREASED [None]
